FAERS Safety Report 8318084-7 (Version None)
Quarter: 2012Q2

REPORT INFORMATION
  Report Type: 
  Country: None (occurrence: None)
  Receive Date: 20120427
  Receipt Date: 20120424
  Transmission Date: 20120825
  Serious: Yes (Other)
  Sender: FDA-Public Use
  Company Number: FR-ROCHE-1052496

PATIENT
  Sex: Female
  Weight: 83 kg

DRUGS (7)
  1. CACIT D3 [Concomitant]
  2. ACTONEL [Concomitant]
  3. ACTEMRA [Suspect]
     Indication: RHEUMATOID ARTHRITIS
     Route: 042
     Dates: start: 20120207, end: 20120207
  4. CLAMOXYL (FRANCE) [Suspect]
     Indication: PHARYNGEAL ERYTHEMA
     Route: 048
     Dates: start: 20120307, end: 20120313
  5. PREDNISONE TAB [Concomitant]
     Indication: RHEUMATOID ARTHRITIS
     Route: 048
  6. FOLIC ACID [Concomitant]
  7. CLAMOXYL (FRANCE) [Suspect]
     Indication: RASH PUSTULAR

REACTIONS (4)
  - RASH MACULO-PAPULAR [None]
  - ODYNOPHAGIA [None]
  - GENERALISED ERYTHEMA [None]
  - PHARYNGEAL ERYTHEMA [None]
